FAERS Safety Report 10074168 (Version 7)
Quarter: 2014Q4

REPORT INFORMATION
  Report Type: Spontaneous
  Country: US (occurrence: US)
  Receive Date: 20140413
  Receipt Date: 20141010
  Transmission Date: 20150528
  Serious: Yes (Hospitalization, Other)
  Sender: FDA-Public Use
  Company Number: US-009507513-1404USA002573

PATIENT
  Sex: Male

DRUGS (2)
  1. PROSCAR [Suspect]
     Active Substance: FINASTERIDE
     Indication: ANDROGENETIC ALOPECIA
     Dosage: 5 MG, UNK
     Route: 048
     Dates: start: 19980624, end: 20000110
  2. PROSCAR [Suspect]
     Active Substance: FINASTERIDE
     Dosage: 2.5 MG, UNK
     Route: 048

REACTIONS (14)
  - Testicular seminoma (pure) stage I [Recovered/Resolved]
  - Gynaecomastia [Unknown]
  - Pulmonary mass [Unknown]
  - Hepatic lesion [Unknown]
  - Haematoma [Recovered/Resolved]
  - Wrong technique in drug usage process [Unknown]
  - Infertility [Not Recovered/Not Resolved]
  - Orchidectomy [Unknown]
  - Prostate cancer [Not Recovered/Not Resolved]
  - Intentional product misuse [Unknown]
  - Breast tenderness [Unknown]
  - Biopsy breast [Unknown]
  - Radiotherapy [Unknown]
  - Pain [Unknown]

NARRATIVE: CASE EVENT DATE: 19980624
